FAERS Safety Report 24919160 (Version 1)
Quarter: 2025Q1

REPORT INFORMATION
  Report Type: Spontaneous
  Country: US (occurrence: US)
  Receive Date: 20250204
  Receipt Date: 20250204
  Transmission Date: 20250409
  Serious: No
  Sender: ELI LILLY AND COMPANY
  Company Number: US-ELI_LILLY_AND_COMPANY-US202501021867

PATIENT
  Age: 53 Year
  Sex: Female

DRUGS (16)
  1. ZEPBOUND [Suspect]
     Active Substance: TIRZEPATIDE
     Indication: Weight control
     Route: 058
     Dates: start: 202312
  2. ZEPBOUND [Suspect]
     Active Substance: TIRZEPATIDE
     Indication: Weight control
     Route: 058
     Dates: start: 202312
  3. ZEPBOUND [Suspect]
     Active Substance: TIRZEPATIDE
     Indication: Weight control
     Route: 058
     Dates: start: 202312
  4. ZEPBOUND [Suspect]
     Active Substance: TIRZEPATIDE
     Indication: Weight control
     Route: 058
     Dates: start: 202312
  5. ZEPBOUND [Suspect]
     Active Substance: TIRZEPATIDE
     Indication: Hepatic steatosis
  6. ZEPBOUND [Suspect]
     Active Substance: TIRZEPATIDE
     Indication: Hepatic steatosis
  7. ZEPBOUND [Suspect]
     Active Substance: TIRZEPATIDE
     Indication: Hepatic steatosis
  8. ZEPBOUND [Suspect]
     Active Substance: TIRZEPATIDE
     Indication: Hepatic steatosis
  9. ZEPBOUND [Suspect]
     Active Substance: TIRZEPATIDE
     Indication: Weight control
     Route: 058
  10. ZEPBOUND [Suspect]
     Active Substance: TIRZEPATIDE
     Indication: Weight control
     Route: 058
  11. ZEPBOUND [Suspect]
     Active Substance: TIRZEPATIDE
     Indication: Weight control
     Route: 058
  12. ZEPBOUND [Suspect]
     Active Substance: TIRZEPATIDE
     Indication: Weight control
     Route: 058
  13. ZEPBOUND [Suspect]
     Active Substance: TIRZEPATIDE
     Indication: Hepatic steatosis
  14. ZEPBOUND [Suspect]
     Active Substance: TIRZEPATIDE
     Indication: Hepatic steatosis
  15. ZEPBOUND [Suspect]
     Active Substance: TIRZEPATIDE
     Indication: Hepatic steatosis
  16. ZEPBOUND [Suspect]
     Active Substance: TIRZEPATIDE
     Indication: Hepatic steatosis

REACTIONS (2)
  - Accidental underdose [Unknown]
  - Incorrect dose administered [Unknown]

NARRATIVE: CASE EVENT DATE: 20241201
